FAERS Safety Report 4354121-2 (Version None)
Quarter: 2004Q3

REPORT INFORMATION
  Report Type: 
  Country: None (occurrence: None)
  Receive Date: 20040430
  Receipt Date: 20040419
  Transmission Date: 20050211
  Serious: Yes (Other)
  Sender: FDA-Public Use
  Company Number: 2004-UK-00381UK

PATIENT
  Age: 83 Year
  Sex: Female

DRUGS (6)
  1. MOBIC [Suspect]
     Indication: ANTIINFLAMMATORY THERAPY
     Dosage: PO
     Route: 048
     Dates: start: 20040205
  2. MOBIC [Suspect]
     Indication: ARTHROPATHY
     Dosage: PO
     Route: 048
     Dates: start: 20040205
  3. THYROID TAB [Concomitant]
  4. ATENOLOL [Concomitant]
  5. FUROSEMIDE [Concomitant]
  6. CO-AMILOFRUSE (FRUMIL) [Concomitant]

REACTIONS (3)
  - ORAL PAIN [None]
  - STOMATITIS [None]
  - SWOLLEN TONGUE [None]
